FAERS Safety Report 11875244 (Version 1)
Quarter: 2015Q4

REPORT INFORMATION
  Report Type: Spontaneous
  Country: US (occurrence: None)
  Receive Date: 20151228
  Receipt Date: 20151228
  Transmission Date: 20160305
  Serious: Yes (Hospitalization)
  Sender: FDA-Public Use
  Company Number: None

PATIENT
  Age: 71 Year
  Sex: Female
  Weight: 83.01 kg

DRUGS (9)
  1. DULOXETINE 30MG ACTAVIS ELIZABET [Suspect]
     Active Substance: DULOXETINE
     Indication: OSTEOARTHRITIS
     Dosage: 1 DOSE #30
     Route: 055
  2. LISINOPRIL. [Concomitant]
     Active Substance: LISINOPRIL
  3. GABAPENTIN. [Concomitant]
     Active Substance: GABAPENTIN
  4. VITAMINS [Concomitant]
     Active Substance: VITAMINS
  5. RESVERATROL [Concomitant]
     Active Substance: RESVERATROL
  6. CALCIUM [Concomitant]
     Active Substance: CALCIUM
  7. STOOL SOFTENER [Concomitant]
     Active Substance: DOCUSATE CALCIUM
  8. ATORVASTIN [Concomitant]
     Active Substance: ATORVASTATIN
  9. FISH OIL [Concomitant]
     Active Substance: FISH OIL

REACTIONS (1)
  - Dysuria [None]

NARRATIVE: CASE EVENT DATE: 20151112
